FAERS Safety Report 17479303 (Version 1)
Quarter: 2020Q1

REPORT INFORMATION
  Report Type: Report from Study
  Country: US (occurrence: US)
  Receive Date: 20200229
  Receipt Date: 20200229
  Transmission Date: 20200409
  Serious: Yes (Other)
  Sender: FDA-Public Use
  Company Number: US-BRISTOL-MYERS SQUIBB COMPANY-BMS-2020-016395

PATIENT
  Age: 60 Year
  Sex: Female
  Weight: 63.2 kg

DRUGS (1)
  1. NIVOLUMAB [Suspect]
     Active Substance: NIVOLUMAB
     Indication: SQUAMOUS CELL CARCINOMA OF LUNG
     Dosage: 3 MILLIGRAM/KILOGRAM, OVER 30 MINUTES ON DAY 1
     Route: 042
     Dates: start: 20161129

REACTIONS (2)
  - Syncope [Recovered/Resolved with Sequelae]
  - Facial bones fracture [Unknown]

NARRATIVE: CASE EVENT DATE: 20200207
